FAERS Safety Report 9493249 (Version 2)
Quarter: 2013Q4

REPORT INFORMATION
  Report Type: Report from Study
  Country: US (occurrence: US)
  Receive Date: 20130902
  Receipt Date: 20131111
  Transmission Date: 20140711
  Serious: Yes (Death)
  Sender: FDA-Public Use
  Company Number: PHEH2013US018331

PATIENT
  Sex: Female
  Weight: 123 kg

DRUGS (1)
  1. AFINITOR [Suspect]
     Indication: BREAST CANCER
     Dosage: 10 MG, QD
     Route: 048
     Dates: start: 20120419, end: 20130411

REACTIONS (2)
  - Breast cancer metastatic [Fatal]
  - Metastases to liver [Fatal]
